FAERS Safety Report 7762258-0 (Version None)
Quarter: 2011Q3

REPORT INFORMATION
  Report Type: 
  Country: None (occurrence: None)
  Receive Date: 20110920
  Receipt Date: 20110315
  Transmission Date: 20111222
  Serious: Yes (Other)
  Sender: FDA-Public Use
  Company Number: TW-ROCHE-765213

PATIENT
  Age: 3 Year
  Sex: Male

DRUGS (1)
  1. OSELTAMIVIR [Suspect]
     Indication: INFLUENZA
     Route: 065
     Dates: start: 20110211

REACTIONS (7)
  - SHOCK [None]
  - RENAL IMPAIRMENT [None]
  - CONVULSION [None]
  - ACIDOSIS [None]
  - RESPIRATORY FAILURE [None]
  - COAGULOPATHY [None]
  - HEPATIC FUNCTION ABNORMAL [None]
